FAERS Safety Report 16289051 (Version 3)
Quarter: 2022Q1

REPORT INFORMATION
  Report Type: Spontaneous
  Country: US (occurrence: None)
  Receive Date: 20190509
  Receipt Date: 20220310
  Transmission Date: 20220424
  Serious: Yes (Death, Other)
  Sender: FDA-Public Use
  Company Number: 2019SE63468

PATIENT
  Sex: Male

DRUGS (60)
  1. NEXIUM [Suspect]
     Active Substance: ESOMEPRAZOLE MAGNESIUM
     Indication: Gastrooesophageal reflux disease
     Route: 048
  2. NEXIUM [Suspect]
     Active Substance: ESOMEPRAZOLE MAGNESIUM
     Indication: Gastrooesophageal reflux disease
     Dosage: 20MG/40 MG
     Route: 048
     Dates: start: 2007, end: 2010
  3. NEXIUM [Suspect]
     Active Substance: ESOMEPRAZOLE MAGNESIUM
     Indication: Gastrooesophageal reflux disease
     Route: 048
     Dates: start: 20131114
  4. NEXIUM [Suspect]
     Active Substance: ESOMEPRAZOLE MAGNESIUM
     Indication: Gastrooesophageal reflux disease
     Route: 048
     Dates: start: 20070919
  5. NEXIUM 24HR [Suspect]
     Active Substance: ESOMEPRAZOLE MAGNESIUM
     Indication: Gastrooesophageal reflux disease
     Route: 048
     Dates: start: 2014
  6. NEXIUM I.V. [Suspect]
     Active Substance: ESOMEPRAZOLE SODIUM
     Route: 042
  7. PRILOSEC [Suspect]
     Active Substance: OMEPRAZOLE MAGNESIUM
     Indication: Gastrooesophageal reflux disease
     Route: 048
     Dates: start: 1990, end: 2011
  8. PRILOSEC [Suspect]
     Active Substance: OMEPRAZOLE MAGNESIUM
     Indication: Gastrooesophageal reflux disease
     Dosage: GENERIC
     Route: 065
     Dates: start: 2011, end: 2012
  9. PRILOSEC OTC [Suspect]
     Active Substance: OMEPRAZOLE MAGNESIUM
     Indication: Gastrooesophageal reflux disease
     Route: 048
     Dates: start: 2003, end: 2014
  10. PREVACID [Suspect]
     Active Substance: LANSOPRAZOLE
     Indication: Gastrooesophageal reflux disease
     Route: 065
     Dates: start: 1990, end: 2011
  11. PROTONIX [Suspect]
     Active Substance: PANTOPRAZOLE SODIUM
     Indication: Gastrooesophageal reflux disease
     Route: 065
  12. HYDROCHLOROTHIAZIDE [Concomitant]
     Active Substance: HYDROCHLOROTHIAZIDE
     Dates: start: 20070203, end: 20070424
  13. AMOXICILLIN [Concomitant]
     Active Substance: AMOXICILLIN
     Indication: Infection
     Dates: start: 20070301, end: 20150901
  14. TORSEMIDE [Concomitant]
     Active Substance: TORSEMIDE
     Dates: start: 20070503, end: 20070718
  15. CIPROFLOXACIN [Concomitant]
     Active Substance: CIPROFLOXACIN
     Dates: start: 20071205, end: 20160927
  16. CYCLOSPORINE [Concomitant]
     Active Substance: CYCLOSPORINE
     Dates: start: 20070222, end: 20081020
  17. DOXYCYCLINE [Concomitant]
     Active Substance: DOXYCYCLINE
     Dates: start: 20090713, end: 20090802
  18. HYDRALAZINE [Concomitant]
     Active Substance: HYDRALAZINE HYDROCHLORIDE
     Dates: start: 20100922, end: 20110411
  19. ENALAPRIL [Concomitant]
     Active Substance: ENALAPRIL
     Dates: start: 20110208, end: 20110808
  20. GENTAMICIN [Concomitant]
     Active Substance: GENTAMICIN
     Dates: start: 20110419, end: 20150211
  21. ERYTHROMYCIN [Concomitant]
     Active Substance: ERYTHROMYCIN
     Dates: start: 20120318, end: 20121218
  22. SULFAMETHOXAZOLE [Concomitant]
     Active Substance: SULFAMETHOXAZOLE
     Dates: start: 20130604, end: 20150311
  23. FUROSEMIDE [Concomitant]
     Active Substance: FUROSEMIDE
     Dates: start: 20141013, end: 20141112
  24. ATORVASTATIN [Concomitant]
     Active Substance: ATORVASTATIN
     Dates: start: 20151106, end: 20171127
  25. LEVOFLOXACIN [Concomitant]
     Active Substance: LEVOFLOXACIN
     Dates: start: 20160815, end: 20160821
  26. LOSARTAN [Concomitant]
     Active Substance: LOSARTAN
     Dates: start: 20160120, end: 20170821
  27. AMITRIPTYLINE [Concomitant]
     Active Substance: AMITRIPTYLINE
     Dates: start: 20170726
  28. TYLENOL [Concomitant]
     Active Substance: ACETAMINOPHEN
     Indication: Pain
  29. PEPCID [Concomitant]
     Active Substance: FAMOTIDINE
     Dates: start: 20140922, end: 20141022
  30. MYLANTA [Concomitant]
     Active Substance: ALUMINUM HYDROXIDE\DIMETHICONE\MAGNESIUM HYDROXIDE
  31. ROLAIDS [Concomitant]
     Active Substance: CALCIUM CARBONATE\MAGNESIUM HYDROXIDE
  32. MILK OF MAGNESIA [Concomitant]
     Active Substance: MAGNESIUM HYDROXIDE
  33. TUMS [Concomitant]
     Active Substance: CALCIUM CARBONATE
  34. PEPTO-BISMOL [Concomitant]
     Active Substance: BISMUTH SUBSALICYLATE
  35. ZOLPIDEM [Concomitant]
     Active Substance: ZOLPIDEM TARTRATE
  36. GENTAMICIN [Concomitant]
     Active Substance: GENTAMICIN
  37. CALCITRIOL [Concomitant]
     Active Substance: CALCITRIOL
  38. METOPROLOL [Concomitant]
     Active Substance: METOPROLOL
  39. AFLURIA NOS [Concomitant]
     Active Substance: INFLUENZA VIRUS VACCINE TRIVALENT TYPE A+B AFLURIA
  40. SODIUM BICARBONATE [Concomitant]
     Active Substance: SODIUM BICARBONATE
  41. PREDNISONE [Concomitant]
     Active Substance: PREDNISONE
  42. TACROLIMUS [Concomitant]
     Active Substance: TACROLIMUS
  43. MYCOPHENOLIC ACID [Concomitant]
     Active Substance: MYCOPHENOLIC ACID
  44. VESICARE [Concomitant]
     Active Substance: SOLIFENACIN SUCCINATE
  45. CEFDINIR [Concomitant]
     Active Substance: CEFDINIR
  46. OXYCODONE [Concomitant]
     Active Substance: OXYCODONE
  47. MINOXIDIL [Concomitant]
     Active Substance: MINOXIDIL
  48. PROAIR HFA [Concomitant]
     Active Substance: ALBUTEROL SULFATE
  49. TIZANIDINE [Concomitant]
     Active Substance: TIZANIDINE
  50. VITAMIN D2 [Concomitant]
     Active Substance: ERGOCALCIFEROL
  51. HYOSCYAMINE [Concomitant]
     Active Substance: HYOSCYAMINE
  52. AMLODIPINE [Concomitant]
     Active Substance: AMLODIPINE BESYLATE
  53. CIALIS [Concomitant]
     Active Substance: TADALAFIL
  54. PROGRAF [Concomitant]
     Active Substance: TACROLIMUS
  55. CARVEDILOL [Concomitant]
     Active Substance: CARVEDILOL
  56. ZOSTRESS [Concomitant]
  57. VITAMIN D3 [Concomitant]
     Active Substance: CHOLECALCIFEROL
  58. ZAMPLAR [Concomitant]
  59. VALCYTE [Concomitant]
     Active Substance: VALGANCICLOVIR HYDROCHLORIDE
  60. DEMADEX [Concomitant]
     Active Substance: TORSEMIDE

REACTIONS (5)
  - Acute kidney injury [Fatal]
  - Chronic kidney disease [Unknown]
  - Renal failure [Unknown]
  - Nephrogenic anaemia [Unknown]
  - End stage renal disease [Unknown]
